FAERS Safety Report 11139700 (Version 2)
Quarter: 2015Q2

REPORT INFORMATION
  Report Type: Spontaneous
  Country: GB (occurrence: GB)
  Receive Date: 20150527
  Receipt Date: 20150626
  Transmission Date: 20150821
  Serious: Yes (Death, Congenital Anomaly, Other)
  Sender: FDA-Public Use
  Company Number: GB-PFIZER INC-2015178248

PATIENT
  Sex: Male

DRUGS (4)
  1. ASPIRIN. [Concomitant]
     Active Substance: ASPIRIN
     Dosage: UNK
     Route: 064
  2. FOLIC ACID. [Concomitant]
     Active Substance: FOLIC ACID
     Dosage: 5 MG, UNK
     Route: 064
  3. OMEPRAZOLE. [Concomitant]
     Active Substance: OMEPRAZOLE
     Dosage: UNK
     Route: 064
  4. GABAPENTIN. [Suspect]
     Active Substance: GABAPENTIN
     Indication: EPILEPSY
     Dosage: 2700 MG, DAILY (1100MG IN THE MORNING, 800MG AT MIDDAY, 800MG AT NIGHT)
     Route: 064
     Dates: start: 20140708

REACTIONS (10)
  - Congenital hydronephrosis [Fatal]
  - Placental insufficiency [Fatal]
  - Ultrasound antenatal screen [Not Recovered/Not Resolved]
  - Placental infarction [Fatal]
  - Single umbilical artery [Not Recovered/Not Resolved]
  - Pyelocaliectasis [Not Recovered/Not Resolved]
  - Maternal exposure during pregnancy [Fatal]
  - Congenital bladder anomaly [Not Recovered/Not Resolved]
  - Foetal placental thrombosis [Fatal]
  - Foetal growth restriction [Fatal]
